FAERS Safety Report 7790323-0 (Version None)
Quarter: 2011Q3

REPORT INFORMATION
  Report Type: 
  Country: None (occurrence: None)
  Receive Date: 20110930
  Receipt Date: 20110920
  Transmission Date: 20111222
  Serious: No
  Sender: FDA-Public Use
  Company Number: US-B.I. PHARMACEUTICALS,INC./RIDGEFIELD-2011-BP-22594BP

PATIENT
  Sex: Female

DRUGS (4)
  1. PRADAXA [Suspect]
     Indication: ATRIAL FIBRILLATION
     Dosage: 300 MG
     Route: 048
     Dates: start: 20110901, end: 20110919
  2. PRADAXA [Suspect]
     Dosage: 300 MG
     Route: 048
     Dates: start: 20101101, end: 20101101
  3. CALCITONIN SALMON [Concomitant]
     Indication: OSTEOPOROSIS
  4. PREDNISONE [Concomitant]
     Indication: OSTEOPOROSIS
     Route: 048

REACTIONS (9)
  - CHEST PAIN [None]
  - MOTOR DYSFUNCTION [None]
  - DIZZINESS [None]
  - VOMITING [None]
  - COLD SWEAT [None]
  - DYSPNOEA [None]
  - BLOOD PRESSURE INCREASED [None]
  - MUSCULAR WEAKNESS [None]
  - NAUSEA [None]
